FAERS Safety Report 8008688-3 (Version None)
Quarter: 2011Q4

REPORT INFORMATION
  Report Type: 
  Country: None (occurrence: None)
  Receive Date: 20111227
  Receipt Date: 20111216
  Transmission Date: 20120403
  Serious: Yes (Other)
  Sender: FDA-Public Use
  Company Number: JP-MERCK-1111USA02567

PATIENT
  Age: 73 Year
  Sex: Female

DRUGS (6)
  1. CRESTOR [Concomitant]
     Indication: BLOOD CHOLESTEROL INCREASED
     Route: 048
  2. EPADEL [Concomitant]
     Indication: HYPERLIPIDAEMIA
     Route: 048
  3. FOSAMAX [Suspect]
     Indication: OSTEOPOROSIS
     Route: 048
     Dates: start: 20111107, end: 20111107
  4. BASEN OD [Concomitant]
     Indication: DIABETES MELLITUS
     Route: 048
  5. METFORMIN HCL [Concomitant]
     Indication: DIABETES MELLITUS
     Route: 048
  6. MICAMLO [Concomitant]
     Indication: HYPERTENSION
     Route: 048

REACTIONS (1)
  - RHABDOMYOLYSIS [None]
